FAERS Safety Report 16046079 (Version 1)
Quarter: 2019Q1

REPORT INFORMATION
  Report Type: Report from Study
  Country: US (occurrence: US)
  Receive Date: 20190307
  Receipt Date: 20190307
  Transmission Date: 20190418
  Serious: Yes (Other)
  Sender: FDA-Public Use
  Company Number: US-UCBSA-2019005979

PATIENT
  Age: 30 Year
  Sex: Female

DRUGS (1)
  1. LACOSAMIDE. [Suspect]
     Active Substance: LACOSAMIDE
     Indication: PARTIAL SEIZURES
     Dosage: 50 MG, 2X/DAY (BID)
     Route: 048
     Dates: start: 20181205

REACTIONS (3)
  - Seizure [Recovered/Resolved]
  - Ovarian cyst ruptured [Not Recovered/Not Resolved]
  - Abdominal pain [Not Recovered/Not Resolved]

NARRATIVE: CASE EVENT DATE: 2019
